FAERS Safety Report 21706682 (Version 1)
Quarter: 2022Q4

REPORT INFORMATION
  Report Type: Report from Study
  Country: IT (occurrence: IT)
  Receive Date: 20221209
  Receipt Date: 20221209
  Transmission Date: 20230113
  Serious: Yes (Hospitalization)
  Sender: FDA-Public Use
  Company Number: None

PATIENT
  Age: 44 Year
  Sex: Female

DRUGS (8)
  1. AMLODIPINE [Suspect]
     Active Substance: AMLODIPINE BESYLATE
     Indication: Suicide attempt
     Dosage: TAKEN 14 CPS OF 5 MG
     Dates: start: 20220118, end: 20220118
  2. METFORMIN [Suspect]
     Active Substance: METFORMIN HYDROCHLORIDE
     Indication: Suicide attempt
     Dosage: TAKEN 20 CPS OF 500 MG
     Dates: start: 20220118, end: 20220118
  3. DIOSMIN [Suspect]
     Active Substance: DIOSMIN
     Indication: Suicide attempt
  4. CINNARIZINE\DIMENHYDRINATE [Suspect]
     Active Substance: CINNARIZINE\DIMENHYDRINATE
     Indication: Suicide attempt
     Dosage: TAKEN 20 CPS OF 40 MG
     Dates: start: 20220118, end: 20220118
  5. ASACOL [Suspect]
     Active Substance: MESALAMINE
     Indication: Suicide attempt
     Dosage: TAKEN 12 CPS OF 800 MG
     Dates: start: 20220118, end: 20220118
  6. AUGMENTIN [Suspect]
     Active Substance: AMOXICILLIN\CLAVULANATE POTASSIUM
     Indication: Suicide attempt
     Dosage: TAKEN 6 CPS OF 1 G
     Dates: start: 20220118, end: 20220118
  7. ACETAMINOPHEN\CHLORPHENIRAMINE MALEATE [Suspect]
     Active Substance: ACETAMINOPHEN\CHLORPHENIRAMINE MALEATE
     Indication: Suicide attempt
     Dates: start: 20220118, end: 20220118
  8. BACTRIM [Suspect]
     Active Substance: SULFAMETHOXAZOLE\TRIMETHOPRIM
     Indication: Suicide attempt
     Dosage: TAKEN 4 CP OF 160/800 MG
     Dates: start: 20220118, end: 20220118

REACTIONS (4)
  - Hypoglycaemia [Not Recovered/Not Resolved]
  - Drug abuse [Recovered/Resolved]
  - Tachycardia [Not Recovered/Not Resolved]
  - Suicide attempt [Recovered/Resolved]

NARRATIVE: CASE EVENT DATE: 20220118
